FAERS Safety Report 5364635-4 (Version None)
Quarter: 2007Q2

REPORT INFORMATION
  Report Type: 
  Country: None (occurrence: None)
  Receive Date: 20070607
  Receipt Date: 20061019
  Transmission Date: 20071010
  Serious: Yes (Other)
  Sender: FDA-Public Use
  Company Number: 31485

PATIENT
  Age: 71 Year
  Sex: Female

DRUGS (8)
  1. DIPYRIDAMOLE [Suspect]
     Indication: CARDIAC STRESS TEST
     Dosage: IV
     Route: 042
     Dates: start: 20060621
  2. ALTACE [Concomitant]
  3. COREG [Concomitant]
  4. GLUCOPHAGE [Concomitant]
  5. AMIODARONE HCL [Concomitant]
  6. EVISTA [Concomitant]
  7. PLAVIX [Concomitant]
  8. LOVASTATIN [Concomitant]

REACTIONS (3)
  - PRURITUS [None]
  - RASH [None]
  - SWELLING [None]
